FAERS Safety Report 20214850 (Version 5)
Quarter: 2022Q1

REPORT INFORMATION
  Report Type: Spontaneous
  Country: US (occurrence: US)
  Receive Date: 20211222
  Receipt Date: 20220307
  Transmission Date: 20220423
  Serious: Yes (Hospitalization)
  Sender: FDA-Public Use
  Company Number: US-NOVARTISTESTPH-NVSC2021US292535

PATIENT
  Sex: Male

DRUGS (5)
  1. TAFINLAR [Suspect]
     Active Substance: DABRAFENIB MESYLATE
     Indication: Neoplasm malignant
     Dosage: 75 MG, Q12H
     Route: 048
     Dates: start: 202107
  2. TAFINLAR [Suspect]
     Active Substance: DABRAFENIB MESYLATE
     Dosage: 75 MG, BID
     Route: 048
     Dates: start: 20210728
  3. MEKINIST [Suspect]
     Active Substance: TRAMETINIB DIMETHYL SULFOXIDE
     Indication: Neoplasm malignant
     Dosage: 1 MG, QD
     Route: 048
     Dates: start: 202107
  4. MEKINIST [Suspect]
     Active Substance: TRAMETINIB DIMETHYL SULFOXIDE
     Dosage: 1 MG, QD
     Route: 048
     Dates: start: 20210728
  5. CLOPIDOGREL BISULFATE [Concomitant]
     Active Substance: CLOPIDOGREL BISULFATE
     Indication: Product used for unknown indication
     Dosage: UNK
     Route: 065

REACTIONS (11)
  - Coronary artery occlusion [Unknown]
  - Eating disorder [Unknown]
  - Cognitive disorder [Unknown]
  - Hypoaesthesia [Unknown]
  - Drug interaction [Unknown]
  - Blood albumin increased [Unknown]
  - Gastrointestinal disorder [Unknown]
  - Constipation [Unknown]
  - Arthralgia [Unknown]
  - Erythema [Unknown]
  - Peripheral swelling [Unknown]
